FAERS Safety Report 10449641 (Version 1)
Quarter: 2014Q3

REPORT INFORMATION
  Report Type: Spontaneous
  Country: US (occurrence: US)
  Receive Date: 20140912
  Receipt Date: 20140912
  Transmission Date: 20150326
  Serious: No
  Sender: FDA-Public Use
  Company Number: US-INCYTE CORPORATION-2014IN001575

PATIENT
  Age: 83 Year
  Sex: Male
  Weight: 99.77 kg

DRUGS (7)
  1. ENALAPRIL [Concomitant]
     Active Substance: ENALAPRIL
  2. GABAPENTIN. [Concomitant]
     Active Substance: GABAPENTIN
  3. AVODART [Concomitant]
     Active Substance: DUTASTERIDE
  4. LASIX [Concomitant]
     Active Substance: FUROSEMIDE
  5. JAKAFI [Suspect]
     Active Substance: RUXOLITINIB
     Indication: MYELOFIBROSIS
     Dosage: 5 MG, BID
     Route: 048
     Dates: start: 20140504
  6. WARFARIN [Concomitant]
     Active Substance: WARFARIN
  7. FLOMAX [Concomitant]
     Active Substance: TAMSULOSIN HYDROCHLORIDE

REACTIONS (6)
  - Diarrhoea [Unknown]
  - Chills [Unknown]
  - Feeling cold [Unknown]
  - Infection [Unknown]
  - Vomiting [Unknown]
  - Weight decreased [Unknown]
